FAERS Safety Report 8996832 (Version 1)
Quarter: 2013Q1

REPORT INFORMATION
  Report Type: Spontaneous
  Country: US (occurrence: US)
  Receive Date: 20130104
  Receipt Date: 20130104
  Transmission Date: 20140127
  Serious: Yes (Other)
  Sender: FDA-Public Use
  Company Number: US-009507513-01112271

PATIENT
  Sex: Female

DRUGS (4)
  1. SINGULAIR [Suspect]
     Dosage: 1 T, QD
     Route: 048
  2. NASACORT [Concomitant]
  3. HUMULIN U [Concomitant]
  4. HUMALOG [Concomitant]

REACTIONS (7)
  - Cough [Unknown]
  - Condition aggravated [Unknown]
  - Insomnia [Unknown]
  - Lacrimation increased [Unknown]
  - Upper-airway cough syndrome [Unknown]
  - Retching [Unknown]
  - Sneezing [Unknown]
